FAERS Safety Report 11789967 (Version 1)
Quarter: 2015Q4

REPORT INFORMATION
  Report Type: Spontaneous
  Country: US (occurrence: US)
  Receive Date: 20151201
  Receipt Date: 20151201
  Transmission Date: 20160305
  Serious: No
  Sender: FDA-Public Use
  Company Number: US-MIKART, INC.-1044845

PATIENT
  Age: 65 Year
  Sex: Female

DRUGS (1)
  1. HYDROCODONE BITARTRATE AND ACETAMINOPHEN [Suspect]
     Active Substance: ACETAMINOPHEN\HYDROCODONE BITARTRATE
     Indication: PROCEDURAL PAIN
     Route: 048
     Dates: start: 20151105, end: 20151107

REACTIONS (3)
  - Cold sweat [Recovered/Resolved]
  - Heart rate increased [Recovered/Resolved]
  - Dyspnoea [Recovered/Resolved]

NARRATIVE: CASE EVENT DATE: 20151107
